FAERS Safety Report 4554857-4 (Version None)
Quarter: 2004Q4

REPORT INFORMATION
  Report Type: 
  Country: None (occurrence: None)
  Receive Date: 20041222
  Receipt Date: 20040910
  Transmission Date: 20050328
  Serious: No
  Sender: FDA-Public Use
  Company Number: 208977

PATIENT
  Age: 77 Year
  Sex: Male
  Weight: 68.5 kg

DRUGS (4)
  1. AVASTIN [Suspect]
     Indication: COLON CANCER
     Dosage: 325 MG, Q2W, INTRAVENOUS
     Route: 042
     Dates: start: 20040628, end: 20040726
  2. OXALIPLATIN (OXALIPLATIN) [Concomitant]
  3. LEUCOVORIN CALCIUM [Concomitant]
  4. FLUOROURACIL [Concomitant]

REACTIONS (2)
  - CHILLS [None]
  - HYPERTHERMIA [None]
